FAERS Safety Report 8030690-6 (Version None)
Quarter: 2012Q1

REPORT INFORMATION
  Report Type: 
  Country: None (occurrence: None)
  Receive Date: 20120109
  Receipt Date: 20111228
  Transmission Date: 20120608
  Serious: Yes (Hospitalization, Disabling)
  Sender: FDA-Public Use
  Company Number: DE-ROCHE-1025484

PATIENT
  Sex: Male
  Weight: 83 kg

DRUGS (8)
  1. METOCLOPRAMIDE [Concomitant]
     Indication: INSOMNIA
  2. ZOLPIDEM [Concomitant]
     Indication: INSOMNIA
     Dosage: MAXIMUM 1 TABLET PRN
     Dates: start: 20110830
  3. TRAMADOL HCL [Concomitant]
     Indication: PAIN
     Dates: start: 20090101
  4. PEGINTERFERON ALFA-2A [Suspect]
     Indication: HEPATITIS C
     Route: 058
     Dates: start: 20110802
  5. COPEGUS [Suspect]
     Indication: HEPATITIS C
     Route: 048
     Dates: start: 20110802
  6. ACETAMINOPHEN [Concomitant]
     Indication: INFLUENZA
     Dates: start: 20110816
  7. METOCLOPRAMIDE [Concomitant]
     Indication: NAUSEA
     Dosage: MAX 3X20 DROPS
     Dates: start: 20110816
  8. BLINDED BI 201335 (HCV PROTEASE INHIBITOR) [Suspect]
     Indication: HEPATITIS C
     Route: 048
     Dates: start: 20110802

REACTIONS (5)
  - PERIPHERAL ARTERIAL OCCLUSIVE DISEASE [None]
  - ANAEMIA [None]
  - INSOMNIA [None]
  - CONDITION AGGRAVATED [None]
  - NAUSEA [None]
